FAERS Safety Report 10765461 (Version 2)
Quarter: 2015Q1

REPORT INFORMATION
  Report Type: Report from Study
  Country: CA (occurrence: CA)
  Receive Date: 20150205
  Receipt Date: 20150211
  Transmission Date: 20150721
  Serious: Yes (Death, Hospitalization)
  Sender: FDA-Public Use
  Company Number: CA-JNJFOC-20150201534

PATIENT
  Sex: Female

DRUGS (3)
  1. ACETAMINOPHEN. [Suspect]
     Active Substance: ACETAMINOPHEN
     Route: 048
  2. ETHANOL [Suspect]
     Active Substance: ALCOHOL
     Indication: PRODUCT USED FOR UNKNOWN INDICATION
     Route: 065
  3. ACETAMINOPHEN. [Suspect]
     Active Substance: ACETAMINOPHEN
     Indication: PRODUCT USED FOR UNKNOWN INDICATION
     Route: 048
     Dates: start: 20051220, end: 20060103

REACTIONS (10)
  - Alcohol abuse [Unknown]
  - Acute kidney injury [Fatal]
  - Escherichia urinary tract infection [None]
  - Acute hepatic failure [Fatal]
  - Drug abuse [Unknown]
  - Lactic acidosis [Fatal]
  - Encephalopathy [Unknown]
  - Overdose [Unknown]
  - Brain oedema [Fatal]
  - Sepsis [None]
